FAERS Safety Report 10081472 (Version 4)
Quarter: 2014Q2

REPORT INFORMATION
  Report Type: Spontaneous
  Country: US (occurrence: US)
  Receive Date: 20140416
  Receipt Date: 20140611
  Transmission Date: 20141212
  Serious: No
  Sender: FDA-Public Use
  Company Number: US-PFIZER INC-2014105878

PATIENT
  Age: 58 Year
  Sex: Male
  Weight: 95.24 kg

DRUGS (2)
  1. CELEBREX [Suspect]
     Indication: PROCEDURAL PAIN
     Dosage: 200 MG, DAILY
     Dates: start: 201404, end: 2014
  2. CELEBREX [Suspect]
     Dosage: 200 MG, DAILY
     Dates: start: 201404, end: 2014

REACTIONS (3)
  - Discomfort [Unknown]
  - Malaise [Unknown]
  - Hypertension [Recovered/Resolved]
